FAERS Safety Report 9656898 (Version 1)
Quarter: 2013Q4

REPORT INFORMATION
  Report Type: Spontaneous
  Country: CA (occurrence: None)
  Receive Date: 20131028
  Receipt Date: 20131028
  Transmission Date: 20140711
  Serious: Yes (Life-Threatening, Hospitalization, Other)
  Sender: FDA-Public Use
  Company Number: FK201304720

PATIENT
  Age: 10 Year
  Sex: Male
  Weight: 41 kg

DRUGS (5)
  1. ACYCLOVIR SODIUM (MANUFACTURER UNKNOWN) (ACYCLOVIR SODIUM) (ACYCLOVIR SODIUM) [Suspect]
     Indication: PRODUCT USED FOR UNKNOWN INDICATION
     Dosage: 650 MG, 1 IN 8 HR, INTRAVENOUS
     Route: 042
  2. VANCOMYCIN (MANUFACTURER UNKNOWN) (VANCOMYCIN) (VANCOMYCIN) [Suspect]
     Indication: PRODUCT USED FOR UNKNOWN INDICATION
     Dosage: 630 UNKNOWN, 1 IN 6 HR, INTRAVENOUS
     Route: 042
  3. ACETAMINOPHEN (PARACETAMOL) [Concomitant]
  4. CEFTRIAXONE (CEFTRIAXONE) [Concomitant]
  5. DIPHENHYDRAMINE (DIPHENHYDRAMINE) [Concomitant]

REACTIONS (3)
  - Hypertension [None]
  - Renal failure acute [None]
  - Haemodialysis [None]
